FAERS Safety Report 7204288-3 (Version None)
Quarter: 2010Q4

REPORT INFORMATION
  Report Type: 
  Country: None (occurrence: None)
  Receive Date: 20101230
  Receipt Date: 20101220
  Transmission Date: 20110411
  Serious: Yes (Other)
  Sender: FDA-Public Use
  Company Number: US-ABBOTT-10P-163-0692604-00

PATIENT
  Sex: Female

DRUGS (1)
  1. LUPRON DEPOT [Suspect]
     Dates: start: 20050101

REACTIONS (4)
  - HOT FLUSH [None]
  - LAPAROSCOPIC SURGERY [None]
  - NIGHT SWEATS [None]
  - VULVOVAGINAL DRYNESS [None]
